FAERS Safety Report 7582137 (Version 3)
Quarter: 2012Q4

REPORT INFORMATION
  Report Type: 
  Country: US (occurrence: US)
  Receive Date: 20100913
  Receipt Date: 20121114
  Transmission Date: 20130627
  Serious: Yes (Hospitalization, Disabling, Other)
  Sender: FDA-Public Use
  Company Number: US-ASTRAZENECA-2010SE41346

PATIENT
  Age: 72 Year
  Sex: Female

DRUGS (13)
  1. ZOMIG [Suspect]
     Route: 048
  2. ZOMIG [Suspect]
     Route: 045
     Dates: start: 20100902
  3. SYMBICORT PMDI [Suspect]
     Route: 055
  4. NEXIUM [Suspect]
     Route: 048
  5. BUDESONIDE [Suspect]
     Route: 055
  6. COREG [Concomitant]
  7. TRAZODONE [Concomitant]
  8. ATIVAN [Concomitant]
  9. BUSPAR [Concomitant]
  10. TRIMETHOPRIM [Concomitant]
     Indication: BLADDER DISORDER
  11. ATROVENT INHALER [Concomitant]
     Route: 055
  12. VITAMINS [Concomitant]
  13. PERFORMIS [Concomitant]

REACTIONS (15)
  - Breast cancer [Unknown]
  - Hip fracture [Unknown]
  - Neoplasm malignant [Unknown]
  - Lower limb fracture [Unknown]
  - Chronic obstructive pulmonary disease [Unknown]
  - Body height decreased [Unknown]
  - Mental impairment [Unknown]
  - Discomfort [Unknown]
  - Migraine [Unknown]
  - Pain [Unknown]
  - Dysphonia [Unknown]
  - Paraesthesia [Unknown]
  - Headache [Unknown]
  - Drug dose omission [Unknown]
  - Drug ineffective [Unknown]
